FAERS Safety Report 14176487 (Version 2)
Quarter: 2017Q4

REPORT INFORMATION
  Report Type: Report from Study
  Country: GB (occurrence: GB)
  Receive Date: 20171109
  Receipt Date: 20171201
  Transmission Date: 20180321
  Serious: Yes (Hospitalization)
  Sender: FDA-Public Use
  Company Number: PHHY2017GB165767

PATIENT
  Sex: Female

DRUGS (2)
  1. TOBI PODHALER [Suspect]
     Active Substance: TOBRAMYCIN
     Indication: CYSTIC FIBROSIS
     Dosage: 1 DF, BID, (NOT LESS THAN 6 HOURS BETWEEN DOSES) (FOR USE ON ALTERNATE MONTHS)
     Route: 055
     Dates: start: 20150121
  2. TOBI PODHALER [Suspect]
     Active Substance: TOBRAMYCIN
     Dosage: 1 DF, BID, (NOT LESS THAN 6 HOURS BETWEEN DOSES) (FOR USE ON ALTERNATE MONTHS)
     Route: 055
     Dates: start: 20150121

REACTIONS (1)
  - Abdominal pain [Unknown]
